FAERS Safety Report 8200158-2 (Version None)
Quarter: 2012Q1

REPORT INFORMATION
  Report Type: 
  Country: None (occurrence: None)
  Receive Date: 20120312
  Receipt Date: 20120302
  Transmission Date: 20120608
  Serious: Yes (Other)
  Sender: FDA-Public Use
  Company Number: US-BAYER-2011-061308

PATIENT
  Age: 35 Year
  Sex: Female
  Weight: 63.492 kg

DRUGS (3)
  1. YASMIN [Suspect]
     Indication: ACNE
     Dosage: UNK
     Dates: start: 20050101, end: 20070101
  2. SYNTHROID [Concomitant]
  3. YASMIN [Suspect]
     Indication: PREMENSTRUAL SYNDROME

REACTIONS (2)
  - VARICOSE VEIN [None]
  - DEEP VEIN THROMBOSIS [None]
